FAERS Safety Report 8297235-7 (Version None)
Quarter: 2012Q2

REPORT INFORMATION
  Report Type: 
  Country: None (occurrence: None)
  Receive Date: 20120419
  Receipt Date: 20120412
  Transmission Date: 20120825
  Serious: Yes (Hospitalization, Other)
  Sender: FDA-Public Use
  Company Number: US-BAYER-2012-006009

PATIENT
  Age: 33 Year
  Sex: Female
  Weight: 74.83 kg

DRUGS (11)
  1. OMEPRAZOLE [Concomitant]
  2. LEVOTHYROXINE SODIUM [Concomitant]
     Indication: HYPERTENSION
     Dosage: 50 MCG/24HR, ONCE
     Dates: start: 20060101
  3. LANSOPRAZOLE [Concomitant]
     Dosage: 30 MG, DAILY
     Dates: start: 20110130
  4. PREVACID [Concomitant]
     Dosage: 30 MG, DAILY
     Dates: start: 20110322
  5. ACETAMINOPHEN AND HYDROCODONE BITARTRATE [Concomitant]
     Dosage: UNK
     Dates: start: 20110323
  6. SULFAMETHOXAZOLE [Concomitant]
     Dosage: UNK
     Dates: start: 20110130
  7. ATENOLOL [Concomitant]
     Indication: THYROID DISORDER
     Dosage: 25 MG, ONCE
     Dates: start: 20090401
  8. SYNTHROID [Concomitant]
  9. DULCOLAX [Concomitant]
     Indication: CONSTIPATION
     Dosage: 5 MG, DAILY
     Dates: start: 20110322
  10. ZOFRAN [Concomitant]
  11. DROSPIRENONE AND ETHINYL ESTRADIOL [Suspect]
     Indication: MENSTRUATION IRREGULAR
     Dosage: UNK
     Route: 048
     Dates: start: 20080801, end: 20091101

REACTIONS (3)
  - GALLBLADDER DISORDER [None]
  - PAIN [None]
  - CHOLECYSTITIS ACUTE [None]
